FAERS Safety Report 12269229 (Version 2)
Quarter: 2016Q2

REPORT INFORMATION
  Report Type: Spontaneous
  Country: AT (occurrence: AT)
  Receive Date: 20160414
  Receipt Date: 20160502
  Transmission Date: 20160815
  Serious: Yes (Hospitalization)
  Sender: FDA-Public Use
  Company Number: AT-B.I. PHARMACEUTICALS,INC./RIDGEFIELD-2016-BI-22041BE

PATIENT
  Age: 90 Year
  Sex: Female
  Weight: 60 kg

DRUGS (7)
  1. EUTHYROX [Concomitant]
     Active Substance: LEVOTHYROXINE SODIUM
     Indication: HYPOTHYROIDISM
     Dosage: 100 ANZ
     Route: 065
     Dates: start: 1998
  2. LANITOP [Concomitant]
     Active Substance: METILDIGOXIN
     Indication: CARDIAC FAILURE CONGESTIVE
     Dosage: 0.1 ANZ
     Route: 065
     Dates: start: 201402
  3. PRADAXA [Suspect]
     Active Substance: DABIGATRAN ETEXILATE MESYLATE
     Indication: ATRIAL FIBRILLATION
     Dosage: 220 MG
     Route: 048
     Dates: start: 201402, end: 201602
  4. FUROSPIROBENE [Concomitant]
     Indication: CARDIAC FAILURE CONGESTIVE
     Dosage: 1 ANZ
     Route: 065
     Dates: start: 201402
  5. TORASEMID [Concomitant]
     Active Substance: TORSEMIDE
     Indication: CARDIAC FAILURE CONGESTIVE
     Dosage: 1 ANZ
     Route: 065
  6. RENITEC [Concomitant]
     Active Substance: ENALAPRIL MALEATE
     Indication: CARDIAC FAILURE CONGESTIVE
     Dosage: 10 MG
     Route: 065
     Dates: start: 201402
  7. PANTOLOC [Concomitant]
     Active Substance: PANTOPRAZOLE SODIUM
     Indication: PROPHYLAXIS
     Dosage: 40 MG
     Route: 065

REACTIONS (1)
  - Appendicitis [Recovered/Resolved]

NARRATIVE: CASE EVENT DATE: 20160226
